FAERS Safety Report 4485727-8 (Version None)
Quarter: 2004Q4

REPORT INFORMATION
  Report Type: 
  Country: None (occurrence: None)
  Receive Date: 20041026
  Receipt Date: 20041019
  Transmission Date: 20050328
  Serious: Yes (Other)
  Sender: FDA-Public Use
  Company Number: NO-GLAXOSMITHKLINE-B0349044A

PATIENT
  Age: 48 Year
  Sex: Female

DRUGS (1)
  1. ZYBAN [Suspect]
     Route: 048

REACTIONS (2)
  - INSOMNIA [None]
  - SLEEP DISORDER [None]
